FAERS Safety Report 21292223 (Version 1)
Quarter: 2022Q3

REPORT INFORMATION
  Report Type: Other
  Country: IN (occurrence: None)
  Receive Date: 20220905
  Receipt Date: 20220905
  Transmission Date: 20221027
  Serious: Yes (Other)
  Sender: FDA-Public Use
  Company Number: IN-Saptalis Pharmaceuticals,LLC-000296

PATIENT
  Age: 28 Year
  Sex: Male

DRUGS (2)
  1. TRIAMCINOLONE ACETONIDE [Suspect]
     Active Substance: TRIAMCINOLONE ACETONIDE
     Indication: Endocrine ophthalmopathy
     Route: 031
  2. METHYLPREDNISOLONE [Concomitant]
     Active Substance: METHYLPREDNISOLONE
     Indication: Endocrine ophthalmopathy
     Route: 042

REACTIONS (6)
  - Swelling of eyelid [Recovered/Resolved]
  - Aspergillus infection [Recovered/Resolved]
  - Exophthalmos [Recovered/Resolved]
  - Pupillary reflex impaired [Recovered/Resolved]
  - Binocular eye movement disorder [Recovered/Resolved]
  - Conjunctival oedema [Recovered/Resolved]
